FAERS Safety Report 5693117-5 (Version None)
Quarter: 2008Q2

REPORT INFORMATION
  Report Type: 
  Country: None (occurrence: None)
  Receive Date: 20080402
  Receipt Date: 20080402
  Transmission Date: 20081010
  Serious: No
  Sender: FDA-Public Use
  Company Number: None

PATIENT
  Age: 51 Year
  Sex: Male
  Weight: 71.2147 kg

DRUGS (1)
  1. SINGULAIR [Suspect]
     Dosage: 1 TABLET AT BEDTIME DAILY PO; DAILY
     Route: 048
     Dates: start: 20030223, end: 20080402

REACTIONS (1)
  - MOOD ALTERED [None]
